FAERS Safety Report 6994253-3 (Version None)
Quarter: 2010Q3

REPORT INFORMATION
  Report Type: 
  Country: None (occurrence: None)
  Receive Date: 20100917
  Receipt Date: 20070815
  Transmission Date: 20110219
  Serious: Yes (Hospitalization, Other)
  Sender: FDA-Public Use
  Company Number: US-ASTRAZENECA-2006UW27895

PATIENT
  Age: 14191 Day
  Sex: Female
  Weight: 73.9 kg

DRUGS (30)
  1. SEROQUEL [Suspect]
     Indication: BIPOLAR DISORDER
     Route: 048
     Dates: start: 20040101, end: 20050101
  2. SEROQUEL [Suspect]
     Indication: DEPRESSION
     Route: 048
     Dates: start: 20040101, end: 20050101
  3. SEROQUEL [Suspect]
     Indication: INSOMNIA
     Route: 048
     Dates: start: 20040101, end: 20050101
  4. SEROQUEL [Suspect]
     Dosage: 100 MG, Q NIGHTLY
     Route: 048
     Dates: start: 20050215
  5. SEROQUEL [Suspect]
     Dosage: 100 MG, Q NIGHTLY
     Route: 048
     Dates: start: 20050215
  6. SEROQUEL [Suspect]
     Dosage: 100 MG, Q NIGHTLY
     Route: 048
     Dates: start: 20050215
  7. ABILIFY [Concomitant]
  8. ZYPREXA [Concomitant]
  9. FLUOXETINE [Concomitant]
     Dates: start: 20060101
  10. TRAZODONE HCL [Concomitant]
     Indication: INSOMNIA
     Dates: start: 20030101
  11. TRAZODONE HCL [Concomitant]
     Dosage: 100-300 MG
     Dates: start: 20050215
  12. LOVASTATIN [Concomitant]
  13. PRILOSEC [Concomitant]
  14. HYDROCHLOROTHIAZIDE [Concomitant]
     Dates: start: 20050328
  15. ALLOPURINOL [Concomitant]
     Dates: start: 20050328
  16. REMERON [Concomitant]
     Dates: start: 20050215
  17. KLONOPIN [Concomitant]
     Indication: ANXIETY
     Dosage: 0.5-3 MG
     Dates: start: 20050215
  18. COLCHICINE [Concomitant]
     Dates: start: 20050328
  19. ZOLOFT [Concomitant]
     Dates: start: 20060124
  20. LASIX [Concomitant]
     Dates: start: 20050328
  21. SINGULAIR [Concomitant]
     Dates: start: 20050328
  22. ADVAIR DISKUS 100/50 [Concomitant]
     Dates: start: 20050328
  23. LISINOPRIL [Concomitant]
     Dates: start: 20080104
  24. LANTUS [Concomitant]
     Dosage: 25 UNITS, HS
     Dates: start: 20071227
  25. ACTOS [Concomitant]
     Dates: start: 20071227
  26. SIMVASTATIN [Concomitant]
     Dates: start: 20071227
  27. PROTONIX [Concomitant]
     Dates: start: 20071227
  28. GENOVIA [Concomitant]
     Dates: start: 20071227
  29. LYRICA [Concomitant]
     Dates: start: 20071227
  30. GLUCOPHAGE [Concomitant]
     Dates: start: 20060124

REACTIONS (7)
  - DIABETES MELLITUS [None]
  - PANCREATITIS [None]
  - PANCREATITIS ACUTE [None]
  - RENAL FAILURE [None]
  - RENAL FAILURE ACUTE [None]
  - TYPE 1 DIABETES MELLITUS [None]
  - TYPE 2 DIABETES MELLITUS [None]
